FAERS Safety Report 8437785-3 (Version None)
Quarter: 2012Q2

REPORT INFORMATION
  Report Type: 
  Country: None (occurrence: None)
  Receive Date: 20120614
  Receipt Date: 20120509
  Transmission Date: 20120825
  Serious: No
  Sender: FDA-Public Use
  Company Number: US-AMGEN-USASP2012029275

PATIENT
  Age: 66 Year
  Sex: Female

DRUGS (10)
  1. PROLIA [Suspect]
     Indication: OSTEOPOROSIS POSTMENOPAUSAL
     Dosage: 60 MG, Q6MO
     Dates: start: 20120214
  2. THYROID TAB [Concomitant]
  3. MULTIVITAMIN                       /00097801/ [Concomitant]
     Dosage: UNK
  4. PREDNISONE TAB [Concomitant]
     Dosage: 5 MG, UNK
  5. JARRO DOPHILUS [Concomitant]
     Dosage: UNK
  6. TUMS                               /00193601/ [Concomitant]
  7. PREDNISONE TAB [Concomitant]
     Dosage: 4 MG, QD
  8. ZANTAC [Concomitant]
  9. AZITHROMYCIN [Concomitant]
     Dosage: 3 MG, UNK
  10. ADVAIR DISKUS 100/50 [Concomitant]
     Dosage: UNK

REACTIONS (2)
  - NASOPHARYNGITIS [None]
  - VITAMIN D DECREASED [None]
